FAERS Safety Report 15634411 (Version 1)
Quarter: 2018Q4

REPORT INFORMATION
  Report Type: Spontaneous
  Country: US (occurrence: US)
  Receive Date: 20181119
  Receipt Date: 20181119
  Transmission Date: 20190205
  Serious: Yes (Disabling)
  Sender: FDA-Public Use
  Company Number: None

PATIENT
  Age: 67 Year
  Sex: Female
  Weight: 74.25 kg

DRUGS (2)
  1. TRANSDERM SCOP [Suspect]
     Active Substance: SCOPOLAMINE
     Indication: HYPERHIDROSIS
     Dosage: ?          QUANTITY:1 PATCH(ES);OTHER FREQUENCY:EVERY 72 HOURS;?
     Dates: start: 20180909, end: 20181029
  2. TRANSDERM SCOP [Suspect]
     Active Substance: SCOPOLAMINE
     Indication: HYPERHIDROSIS
     Dosage: ?          QUANTITY:1 PATCH(ES);OTHER FREQUENCY:EVERY 72 HOURS;?
     Route: 062
     Dates: start: 20180909, end: 20181029

REACTIONS (10)
  - Anxiety [None]
  - Hyperhidrosis [None]
  - Withdrawal syndrome [None]
  - Dizziness [None]
  - Tremor [None]
  - Memory impairment [None]
  - Increased appetite [None]
  - Confusional state [None]
  - Nausea [None]
  - Fatigue [None]

NARRATIVE: CASE EVENT DATE: 20181031
